FAERS Safety Report 21529334 (Version 2)
Quarter: 2023Q1

REPORT INFORMATION
  Report Type: Spontaneous
  Country: US (occurrence: US)
  Receive Date: 20221031
  Receipt Date: 20230111
  Transmission Date: 20230417
  Serious: Yes (Other)
  Sender: FDA-Public Use
  Company Number: US-ELI_LILLY_AND_COMPANY-US202210011321

PATIENT
  Sex: Male
  Weight: 36.7 kg

DRUGS (2)
  1. TALTZ [Suspect]
     Active Substance: IXEKIZUMAB
     Indication: Psoriasis
     Dosage: 40 MG, MONTHLY (1/M)
     Route: 065
     Dates: start: 20220917, end: 20221216
  2. TALTZ [Suspect]
     Active Substance: IXEKIZUMAB
     Indication: Dermatitis atopic
     Dosage: 40 MG, UNKNOWN
     Route: 065

REACTIONS (1)
  - Hepatocellular carcinoma [Unknown]
